FAERS Safety Report 20004917 (Version 2)
Quarter: 2021Q4

REPORT INFORMATION
  Report Type: Spontaneous
  Country: US (occurrence: US)
  Receive Date: 20211027
  Receipt Date: 20211230
  Transmission Date: 20220303
  Serious: Yes (Life-Threatening, Hospitalization)
  Sender: FDA-Public Use
  Company Number: US-LUPIN PHARMACEUTICALS INC.-2021-20777

PATIENT
  Age: 34 Year
  Sex: Male

DRUGS (5)
  1. HYDROCORTISONE [Suspect]
     Active Substance: HYDROCORTISONE
     Indication: Distributive shock
     Dosage: UNK
     Route: 065
  2. METHYLENE BLUE [Suspect]
     Active Substance: METHYLENE BLUE
     Indication: Distributive shock
     Dosage: UNK
     Route: 065
  3. MAGNESIUM [Concomitant]
     Active Substance: MAGNESIUM
     Indication: Mineral supplementation
     Dosage: UNK
     Route: 065
  4. IBUPROFEN [Concomitant]
     Active Substance: IBUPROFEN
     Indication: Product used for unknown indication
     Dosage: UNK
     Route: 065
  5. CALCIUM [Concomitant]
     Active Substance: CALCIUM
     Indication: Overdose
     Dosage: UNK
     Route: 042

REACTIONS (2)
  - Drug ineffective for unapproved indication [Unknown]
  - Off label use [Unknown]
